FAERS Safety Report 6222171-7 (Version None)
Quarter: 2009Q2

REPORT INFORMATION
  Report Type: 
  Country: None (occurrence: None)
  Receive Date: 20090611
  Receipt Date: 20090529
  Transmission Date: 20091009
  Serious: Yes (Hospitalization, Other)
  Sender: FDA-Public Use
  Company Number: US-ROCHE-586660

PATIENT
  Sex: Male
  Weight: 84.8 kg

DRUGS (21)
  1. PEG-INTERFERON A-2A (RO 25-8310) [Suspect]
     Dosage: FORM: PRE-FILLED SYRINGE, RECEIVED 135 UG ONCE, OTHER INDICATION: HIV
     Route: 058
     Dates: start: 20080808
  2. PEG-INTERFERON A-2A (RO 25-8310) [Suspect]
     Route: 058
     Dates: start: 20081205
  3. PEG-INTERFERON A-2A (RO 25-8310) [Suspect]
     Route: 058
     Dates: start: 20081224
  4. PEG-INTERFERON A-2A (RO 25-8310) [Suspect]
     Dosage: WEEK 31
     Route: 058
     Dates: end: 20090306
  5. RIBAVIRIN [Suspect]
     Dosage: DIVIDED DOSES, OTHER INDICATION: HIV.
     Route: 048
     Dates: start: 20080608
  6. RIBAVIRIN [Suspect]
     Route: 048
  7. RIBAVIRIN [Suspect]
     Dosage: DOSAGE LOWERED, WEEK 31
     Route: 048
     Dates: start: 20090111, end: 20090306
  8. TRUVADA [Concomitant]
  9. REYATAZ [Concomitant]
  10. NORVIR [Concomitant]
  11. NYSTATIN [Concomitant]
  12. MYCELEX [Concomitant]
  13. ATARAX [Concomitant]
  14. HYDROCODONE BITARTRATE [Concomitant]
  15. ENALAPRIL [Concomitant]
  16. LORAZEPAM [Concomitant]
  17. REGLAN [Concomitant]
  18. NEUPOGEN [Concomitant]
  19. ULTRAM [Concomitant]
     Dosage: AS NECESSARY.
  20. MARINOL [Concomitant]
  21. MILK THISTLE [Concomitant]

REACTIONS (42)
  - ABDOMINAL PAIN [None]
  - ALOPECIA [None]
  - AMNESIA [None]
  - ANAEMIA [None]
  - BACK PAIN [None]
  - BONE PAIN [None]
  - CANDIDIASIS [None]
  - CHEST PAIN [None]
  - CHOKING [None]
  - CHOLECYSTECTOMY [None]
  - DIARRHOEA [None]
  - DYSGEUSIA [None]
  - EYE HAEMORRHAGE [None]
  - FATIGUE [None]
  - FLANK PAIN [None]
  - HAEMATURIA [None]
  - HAEMOPTYSIS [None]
  - HAEMORRHAGE [None]
  - HEADACHE [None]
  - HEPATIC FAILURE [None]
  - HYPOAESTHESIA [None]
  - INSOMNIA [None]
  - IRRITABILITY [None]
  - LACTOSE INTOLERANCE [None]
  - LEUKOPENIA [None]
  - MONOPLEGIA [None]
  - NAUSEA [None]
  - NEUROPATHY PERIPHERAL [None]
  - ORAL CANDIDIASIS [None]
  - PAIN IN EXTREMITY [None]
  - PLATELET COUNT DECREASED [None]
  - PRURITUS [None]
  - PSYCHOMOTOR HYPERACTIVITY [None]
  - RASH [None]
  - RASH PRURITIC [None]
  - RETCHING [None]
  - STAPHYLOCOCCAL INFECTION [None]
  - SUICIDAL IDEATION [None]
  - T-LYMPHOCYTE COUNT DECREASED [None]
  - VOMITING [None]
  - WEIGHT DECREASED [None]
  - WHITE BLOOD CELL COUNT DECREASED [None]
